FAERS Safety Report 17617760 (Version 4)
Quarter: 2021Q4

REPORT INFORMATION
  Report Type: Spontaneous
  Country: US (occurrence: US)
  Receive Date: 20200402
  Receipt Date: 20211202
  Transmission Date: 20220304
  Serious: Yes (Other)
  Sender: FDA-Public Use
  Company Number: US-PFIZER INC-2020136015

PATIENT
  Age: 69 Year
  Sex: Male
  Weight: 87.54 kg

DRUGS (2)
  1. SOMATROPIN [Suspect]
     Active Substance: SOMATROPIN
     Indication: Craniocerebral injury
     Dosage: 0.4 MG, 1X/DAY, 7 DAYS A WEEK
  2. SOMATROPIN [Suspect]
     Active Substance: SOMATROPIN
     Indication: Central nervous system lesion

REACTIONS (2)
  - Respiratory tract infection [Recovered/Resolved]
  - Hip arthroplasty [Unknown]

NARRATIVE: CASE EVENT DATE: 20200301
